FAERS Safety Report 25633250 (Version 2)
Quarter: 2025Q3

REPORT INFORMATION
  Report Type: Spontaneous
  Country: JP (occurrence: JP)
  Receive Date: 20250801
  Receipt Date: 20250901
  Transmission Date: 20251020
  Serious: Yes (Other)
  Sender: MERCK SHARP & DOHME LLC
  Company Number: JP-009507513-2313797

PATIENT
  Age: 66 Year
  Sex: Male
  Weight: 77.3 kg

DRUGS (5)
  1. JANUVIA [Suspect]
     Active Substance: SITAGLIPTIN PHOSPHATE
     Indication: Type 2 diabetes mellitus
     Dosage: 50 MG, ONCE DAILY
     Route: 048
  2. METGLUCO [Concomitant]
     Active Substance: METFORMIN HYDROCHLORIDE
     Indication: Type 2 diabetes mellitus
     Dosage: 1500 MG ONCE DAILY
     Route: 048
  3. ROSUVASTATIN [Concomitant]
     Active Substance: ROSUVASTATIN
     Indication: Dyslipidaemia
     Dosage: 2.5MG ONCE DAILY
     Route: 048
  4. AMLODIPINE [Concomitant]
     Active Substance: AMLODIPINE BESYLATE
     Indication: Hypertension
     Dosage: 10MG ONCE DAILY
     Route: 048
  5. AZILSARTAN KAMEDOXOMIL [Concomitant]
     Active Substance: AZILSARTAN KAMEDOXOMIL
     Indication: Hypertension
     Dosage: 1MG ONCE DAILY
     Route: 048

REACTIONS (9)
  - Ventricular hypokinesia [Unknown]
  - Glycosylated haemoglobin increased [Recovering/Resolving]
  - Coronary artery disease [Unknown]
  - Coronary artery stenosis [Unknown]
  - Blood glucose abnormal [Unknown]
  - Carotid arteriosclerosis [Unknown]
  - Glycosylated haemoglobin increased [Recovering/Resolving]
  - Carotid artery stenosis [Unknown]
  - Body mass index abnormal [Unknown]

NARRATIVE: CASE EVENT DATE: 20231101
